FAERS Safety Report 11813096 (Version 1)
Quarter: 2015Q4

REPORT INFORMATION
  Report Type: Spontaneous
  Country: US (occurrence: US)
  Receive Date: 20151209
  Receipt Date: 20151209
  Transmission Date: 20160305
  Serious: Yes (Other)
  Sender: FDA-Public Use
  Company Number: US-AMGEN-USASP2015126111

PATIENT
  Age: 67 Year
  Sex: Female
  Weight: 97.96 kg

DRUGS (3)
  1. CARBOPLATIN. [Concomitant]
     Active Substance: CARBOPLATIN
     Dosage: 800 MG, Q3WK
     Route: 042
     Dates: start: 20150918
  2. NEULASTA [Suspect]
     Active Substance: PEGFILGRASTIM
     Indication: NEUTROPENIA
     Dosage: 6 MG, Q3WK
     Route: 058
     Dates: start: 20151120
  3. TAXOL [Concomitant]
     Active Substance: PACLITAXEL
     Dosage: 370 MG, Q3WK
     Route: 042
     Dates: start: 20150918

REACTIONS (3)
  - Drug dose omission [Unknown]
  - Device dislocation [Recovered/Resolved]
  - Device leakage [Unknown]

NARRATIVE: CASE EVENT DATE: 20151121
